FAERS Safety Report 12328604 (Version 1)
Quarter: 2016Q2

REPORT INFORMATION
  Report Type: Spontaneous
  Country: US (occurrence: US)
  Receive Date: 20160503
  Receipt Date: 20160503
  Transmission Date: 20160815
  Serious: No
  Sender: FDA-Public Use
  Company Number: US-BEH-2015049564

PATIENT
  Sex: Female
  Weight: 61.2 kg

DRUGS (1)
  1. HIZENTRA [Suspect]
     Active Substance: HUMAN IMMUNOGLOBULIN G
     Indication: CONGENITAL HYPOGAMMAGLOBULINAEMIA
     Dosage: 1 GM 5 ML DOSING PERIOD: 19-FEB-2015 TO 18-MAR-2015
     Route: 057

REACTIONS (2)
  - Infusion site vesicles [Unknown]
  - Incorrect drug administration rate [Unknown]
